FAERS Safety Report 13143811 (Version 1)
Quarter: 2017Q1

REPORT INFORMATION
  Report Type: Spontaneous
  Country: DE (occurrence: DE)
  Receive Date: 20170124
  Receipt Date: 20170124
  Transmission Date: 20170428
  Serious: Yes (Other)
  Sender: FDA-Public Use
  Company Number: DE-ALVOGEN-2017-ALVOGEN-091303

PATIENT
  Age: 75 Year
  Sex: Female

DRUGS (4)
  1. CISPLATIN. [Suspect]
     Active Substance: CISPLATIN
     Indication: OVARIAN EPITHELIAL CANCER
     Dates: start: 201410, end: 201608
  2. TAMOXIFEN [Concomitant]
     Active Substance: TAMOXIFEN
     Indication: OVARIAN EPITHELIAL CANCER
     Dates: start: 201510, end: 201605
  3. CARBOPLATIN. [Concomitant]
     Active Substance: CARBOPLATIN
     Indication: OVARIAN EPITHELIAL CANCER
     Route: 042
     Dates: start: 201605
  4. DOXORUBICIN [Suspect]
     Active Substance: DOXORUBICIN
     Indication: OVARIAN EPITHELIAL CANCER
     Dosage: PIPAC AT 12 MMHG
     Dates: start: 201410, end: 201608

REACTIONS (4)
  - Off label use [Unknown]
  - Pleural effusion [Unknown]
  - Abdominal pain [Unknown]
  - Pyrexia [Unknown]
